FAERS Safety Report 20703240 (Version 2)
Quarter: 2022Q2

REPORT INFORMATION
  Report Type: Spontaneous
  Country: US (occurrence: US)
  Receive Date: 20220413
  Receipt Date: 20220627
  Transmission Date: 20220721
  Serious: No
  Sender: FDA-Public Use
  Company Number: US-ARGENX-2022-ARGX-US000211

PATIENT
  Sex: Male
  Weight: 101 kg

DRUGS (1)
  1. VYVGART [Suspect]
     Active Substance: EFGARTIGIMOD ALFA-FCAB
     Indication: Myasthenia gravis
     Dosage: UNK
     Dates: end: 20220209

REACTIONS (3)
  - Dyspnoea [Unknown]
  - Muscle spasms [Unknown]
  - Myalgia [Unknown]
